FAERS Safety Report 10958762 (Version 1)
Quarter: 2015Q1

REPORT INFORMATION
  Report Type: Spontaneous
  Country: FR (occurrence: FR)
  Receive Date: 20150326
  Receipt Date: 20150326
  Transmission Date: 20150721
  Serious: Yes (Hospitalization)
  Sender: FDA-Public Use
  Company Number: FR-ASTRAZENECA-2015SE28128

PATIENT
  Age: 15917 Day
  Sex: Male

DRUGS (9)
  1. INEXIUM [Suspect]
     Active Substance: ESOMEPRAZOLE
     Route: 048
     Dates: start: 20150131, end: 20150203
  2. ORELOX [Suspect]
     Active Substance: CEFPODOXIME
     Indication: BRONCHITIS
     Route: 048
     Dates: start: 20150126, end: 20150131
  3. APRANAX [Suspect]
     Active Substance: NAPROXEN
     Route: 048
     Dates: start: 20150131, end: 20150203
  4. HELICIDINE [Suspect]
     Active Substance: ESCARGOT
     Indication: BRONCHITIS
     Route: 048
     Dates: start: 20150126, end: 20150131
  5. INEXIUM [Suspect]
     Active Substance: ESOMEPRAZOLE
     Route: 048
     Dates: start: 20141116, end: 20150126
  6. APRANAX [Suspect]
     Active Substance: NAPROXEN
     Route: 048
     Dates: start: 20141116, end: 20150126
  7. SALAZOPYRINE [Suspect]
     Active Substance: SULFASALAZINE
     Route: 048
     Dates: start: 20141215, end: 20150126
  8. SALAZOPYRINE [Suspect]
     Active Substance: SULFASALAZINE
     Route: 048
     Dates: start: 20150131, end: 20150203
  9. PIVALONE [Suspect]
     Active Substance: TIXOCORTOL PIVALATE
     Indication: BRONCHITIS
     Route: 045
     Dates: start: 20150126, end: 20150131

REACTIONS (1)
  - Drug reaction with eosinophilia and systemic symptoms [Recovering/Resolving]

NARRATIVE: CASE EVENT DATE: 20150203
